FAERS Safety Report 22636738 (Version 1)
Quarter: 2023Q2

REPORT INFORMATION
  Report Type: Spontaneous
  Country: US (occurrence: None)
  Receive Date: 20230621
  Receipt Date: 20230621
  Transmission Date: 20230722
  Serious: Yes (Hospitalization)
  Sender: FDA-Public Use
  Company Number: None

PATIENT
  Sex: Female

DRUGS (1)
  1. JADENU [Suspect]
     Active Substance: DEFERASIROX
     Indication: Haemochromatosis
     Dosage: 1080MG DAILY ORAL?
     Route: 048
     Dates: start: 20181011

REACTIONS (1)
  - Sickle cell anaemia with crisis [None]
